FAERS Safety Report 6337673-2 (Version None)
Quarter: 2009Q3

REPORT INFORMATION
  Report Type: 
  Country: None (occurrence: None)
  Receive Date: 20090902
  Receipt Date: 20090827
  Transmission Date: 20100115
  Serious: Yes (Hospitalization, Other)
  Sender: FDA-Public Use
  Company Number: JP-NOVOPROD-291069

PATIENT
  Age: 66 Year
  Sex: Female

DRUGS (1)
  1. NOVOLIN N [Suspect]
     Indication: OFF LABEL USE
     Dosage: 2400 U, QD
     Route: 058

REACTIONS (3)
  - HYPOGLYCAEMIC COMA [None]
  - INTENTIONAL OVERDOSE [None]
  - SUICIDE ATTEMPT [None]
